FAERS Safety Report 24936897 (Version 1)
Quarter: 2025Q1

REPORT INFORMATION
  Report Type: Spontaneous
  Country: US (occurrence: None)
  Receive Date: 20250206
  Receipt Date: 20250206
  Transmission Date: 20250409
  Serious: Yes (Death)
  Sender: FDA-CTU
  Company Number: None

PATIENT
  Age: 68 Year
  Sex: Female

DRUGS (2)
  1. PROCRIT [Suspect]
     Active Substance: ERYTHROPOIETIN
     Indication: Chronic kidney disease
     Dosage: FREQUENCY : WEEKLY;?
     Route: 058
     Dates: start: 202412
  2. PROCRIT [Suspect]
     Active Substance: ERYTHROPOIETIN
     Indication: Iron deficiency anaemia

REACTIONS (1)
  - Liver disorder [None]

NARRATIVE: CASE EVENT DATE: 20250130
